FAERS Safety Report 18706118 (Version 1)
Quarter: 2021Q1

REPORT INFORMATION
  Report Type: Spontaneous
  Country: US (occurrence: US)
  Receive Date: 20210105
  Receipt Date: 20210105
  Transmission Date: 20210419
  Serious: Yes (Other)
  Sender: FDA-Public Use
  Company Number: None

PATIENT
  Age: 63 Year
  Sex: Female

DRUGS (9)
  1. ADDERALL [Concomitant]
     Active Substance: AMPHETAMINE ASPARTATE\AMPHETAMINE SULFATE\DEXTROAMPHETAMINE SACCHARATE\DEXTROAMPHETAMINE SULFATE
  2. FUROSEMIDE. [Concomitant]
     Active Substance: FUROSEMIDE
  3. TIZANIDINE. [Concomitant]
     Active Substance: TIZANIDINE
  4. BIOTIN [Concomitant]
     Active Substance: BIOTIN
  5. TYMLOS [Suspect]
     Active Substance: ABALOPARATIDE
     Indication: OSTEOPOROSIS
     Dosage: ?          QUANTITY:1.56 ML MILLILITRE(S);?
     Route: 058
     Dates: start: 20201013
  6. CALCIUM [Concomitant]
     Active Substance: CALCIUM
  7. VITAMIN D [Concomitant]
     Active Substance: VITAMIN D NOS
  8. LORTAB [Concomitant]
     Active Substance: ACETAMINOPHEN\HYDROCODONE BITARTRATE
  9. MULTIVITAMIN [Concomitant]
     Active Substance: VITAMINS

REACTIONS (2)
  - Nausea [None]
  - Vomiting [None]

NARRATIVE: CASE EVENT DATE: 20201111
